FAERS Safety Report 24565292 (Version 1)
Quarter: 2024Q4

REPORT INFORMATION
  Report Type: Spontaneous
  Country: JP (occurrence: JP)
  Receive Date: 20241030
  Receipt Date: 20241030
  Transmission Date: 20250114
  Serious: Yes (Life-Threatening, Hospitalization, Other)
  Sender: PFIZER
  Company Number: JP-PFIZER INC-PV202400140211

PATIENT
  Age: 81 Year
  Sex: Female

DRUGS (4)
  1. TRASTUZUMAB [Suspect]
     Active Substance: TRASTUZUMAB
     Indication: Lung cancer metastatic
     Dosage: UNK
  2. TRASTUZUMAB [Suspect]
     Active Substance: TRASTUZUMAB
     Indication: Metastases to bone
  3. PERTUZUMAB [Concomitant]
     Active Substance: PERTUZUMAB
     Indication: Lung cancer metastatic
  4. PERTUZUMAB [Concomitant]
     Active Substance: PERTUZUMAB
     Indication: Metastases to bone

REACTIONS (2)
  - Cardiotoxicity [Recovered/Resolved]
  - Left ventricular dysfunction [Recovered/Resolved]
